FAERS Safety Report 19559302 (Version 1)
Quarter: 2021Q3

REPORT INFORMATION
  Report Type: Spontaneous
  Country: CN (occurrence: CN)
  Receive Date: 20210715
  Receipt Date: 20210715
  Transmission Date: 20211014
  Serious: Yes (Other)
  Sender: FDA-Public Use
  Company Number: CN-FRESENIUS KABI-FK202107137

PATIENT
  Age: 91 Year
  Sex: Female
  Weight: 45 kg

DRUGS (2)
  1. LIPOVENOES MCT 10% [Suspect]
     Active Substance: EGG PHOSPHOLIPIDS\GLYCERIN\MEDIUM-CHAIN TRIGLYCERIDES\SOYBEAN OIL
     Indication: NUTRITIONAL SUPPLEMENTATION
     Dosage: FORM OF ADMIN. WAS REPORTED AS INJECTION IN THE SOURCE.
     Route: 041
     Dates: start: 20210702, end: 20210704
  2. SORBITOL/GLYCINE/ALANINE/SERINE/ASPARTIC ACID/CYSTINE/TYROSINE/LEUCINE/METHIONINE/PHENYLALANINE/HIST [Concomitant]
     Indication: NUTRITIONAL SUPPLEMENTATION
     Dosage: FORM OF ADMIN. WAS REPORTED AS INJECTION IN THE SOURCE.
     Route: 041
     Dates: start: 20210701, end: 20210705

REACTIONS (1)
  - Phlebitis superficial [Recovering/Resolving]

NARRATIVE: CASE EVENT DATE: 20210704
